FAERS Safety Report 4649929-X (Version None)
Quarter: 2005Q2

REPORT INFORMATION
  Report Type: 
  Country: None (occurrence: None)
  Receive Date: 20050428
  Receipt Date: 20050421
  Transmission Date: 20051028
  Serious: Yes (Hospitalization)
  Sender: FDA-Public Use
  Company Number: 2005PK00687

PATIENT
  Age: 81 Year
  Sex: Female

DRUGS (11)
  1. BELOC ZOK [Suspect]
     Dosage: 25 MG DAILY PO
     Route: 048
     Dates: end: 20041214
  2. ENATEC [Suspect]
     Dosage: 40 MG DAILY PO
     Route: 048
     Dates: end: 20041214
  3. ALDACTONE [Suspect]
     Dosage: 100 MG DAILY PO
     Route: 048
     Dates: start: 20041101, end: 20041214
  4. ASPEGIC BABY [Concomitant]
  5. DANCOR [Concomitant]
  6. ZOCOR [Concomitant]
  7. PANTOPRAZOLE SODIUM [Concomitant]
  8. DAFALGAN [Concomitant]
  9. IMOVANE [Concomitant]
  10. SERESTA EXPIDET [Concomitant]
  11. BENADON ^HOFFMANN^ [Concomitant]

REACTIONS (16)
  - ARRHYTHMIA [None]
  - ARTHRITIS BACTERIAL [None]
  - BRADYCARDIA [None]
  - CARDIAC OUTPUT DECREASED [None]
  - DEHYDRATION [None]
  - ELECTROLYTE IMBALANCE [None]
  - GENERAL PHYSICAL HEALTH DETERIORATION [None]
  - HAEMODYNAMIC INSTABILITY [None]
  - HAEMOGLOBIN DECREASED [None]
  - HYPERKALAEMIA [None]
  - HYPOTENSION [None]
  - METABOLIC ACIDOSIS [None]
  - PLATELET COUNT DECREASED [None]
  - PSYCHOMOTOR RETARDATION [None]
  - RENAL FAILURE ACUTE [None]
  - STAPHYLOCOCCAL INFECTION [None]
